FAERS Safety Report 4342907-X (Version None)
Quarter: 2004Q2

REPORT INFORMATION
  Report Type: 
  Country: None (occurrence: None)
  Receive Date: 20040416
  Receipt Date: 20040405
  Transmission Date: 20050107
  Serious: Yes (Death, Life-Threatening)
  Sender: FDA-Public Use
  Company Number: 2004208667FR

PATIENT
  Age: 57 Year
  Sex: Female
  Weight: 80 kg

DRUGS (10)
  1. ADRIBLASTINE (DOXORUBICIN HYDROCHLORIDE) POWDER, STERILE [Suspect]
     Indication: NON-HODGKIN'S LYMPHOMA
     Dosage: 140 MG, CYCLIC, DAY 1, IV
     Route: 042
     Dates: start: 20010213, end: 20010330
  2. BLEOMYCIN [Suspect]
     Indication: NON-HODGKIN'S LYMPHOMA
     Dosage: 10 MG, CYCLIC, DAY 1 AND 5, IV
     Route: 042
     Dates: start: 20010213, end: 20010330
  3. CYCLOPHOSPHAMIDE [Suspect]
     Indication: NON-HODGKIN'S LYMPHOMA
     Dosage: SEE IMAGE
     Dates: start: 20010213, end: 20010330
  4. VINDESINE (VINDESINE) [Suspect]
     Indication: NON-HODGKIN'S LYMPHOMA
     Dosage: 4 MG,  CYCLIC, DAY 1 AND 5, IV
     Route: 042
     Dates: start: 20010213, end: 20010330
  5. PREDNISONE [Suspect]
     Indication: NON-HODGKIN'S LYMPHOMA
     Dosage: 120 MG, CYCLIC, DAYS 1-5, ORAL
     Route: 048
     Dates: start: 20010213, end: 20010330
  6. MABTHERA (RITUXIMAB) [Suspect]
     Dosage: 700 MG, WEEKLY, IV
     Route: 042
     Dates: start: 20010828, end: 20010919
  7. NOVANTRONE [Suspect]
     Dosage: 85 MG, DAY-8
  8. VEPESID [Suspect]
     Dosage: 470 MG, QD DAY-7 -DAY -4
  9. BICNU [Suspect]
     Dosage: 570 MG, DAY -4
  10. METHOTREXATE [Concomitant]
     Dosage: 10.6 G, 2 CYCLES
     Dates: start: 20010428, end: 20010514

REACTIONS (2)
  - PERITONEAL CARCINOMA [None]
  - RESPIRATORY DISTRESS [None]
